FAERS Safety Report 4368984-8 (Version None)
Quarter: 2004Q2

REPORT INFORMATION
  Report Type: 
  Country: None (occurrence: None)
  Receive Date: 20040525
  Receipt Date: 20040511
  Transmission Date: 20050107
  Serious: Yes (Hospitalization)
  Sender: FDA-Public Use
  Company Number: FR-JNJFOC-20040400667

PATIENT
  Sex: Female

DRUGS (1)
  1. REMICADE [Suspect]
     Indication: ANKYLOSING SPONDYLITIS
     Dosage: 200 MG, INTRAVENOUS
     Route: 042
     Dates: start: 20030925, end: 20040226

REACTIONS (3)
  - DIALYSIS [None]
  - ESCHERICHIA URINARY TRACT INFECTION [None]
  - HAEMOLYTIC URAEMIC SYNDROME [None]
